FAERS Safety Report 11865771 (Version 3)
Quarter: 2016Q1

REPORT INFORMATION
  Report Type: Report from Study
  Country: AU (occurrence: AU)
  Receive Date: 20151223
  Receipt Date: 20160202
  Transmission Date: 20160526
  Serious: Yes (Hospitalization, Other)
  Sender: FDA-Public Use
  Company Number: AU-ABBVIE-15P-008-1522449-00

PATIENT
  Sex: Female

DRUGS (1)
  1. DUODOPA [Suspect]
     Active Substance: CARBIDOPA\LEVODOPA
     Indication: PARKINSON^S DISEASE
     Dosage: 24 HOUR INFUSION
     Route: 050
     Dates: start: 20150206

REACTIONS (4)
  - Ovarian cancer metastatic [Unknown]
  - Weight decreased [Unknown]
  - Ascites [Unknown]
  - Peripheral swelling [Unknown]
